FAERS Safety Report 11444600 (Version 3)
Quarter: 2015Q3

REPORT INFORMATION
  Report Type: Spontaneous
  Country: SE (occurrence: SE)
  Receive Date: 20150902
  Receipt Date: 20150923
  Transmission Date: 20151125
  Serious: Yes (Disabling, Other)
  Sender: FDA-Public Use
  Company Number: SE-UCBSA-2015027523

PATIENT
  Age: 47 Year
  Sex: Female

DRUGS (1)
  1. CIMZIA [Suspect]
     Active Substance: CERTOLIZUMAB PEGOL
     Indication: ANKYLOSING SPONDYLITIS
     Dosage: STRENGTH: 200 MG
     Dates: end: 201504

REACTIONS (1)
  - Colitis microscopic [Unknown]

NARRATIVE: CASE EVENT DATE: 201501
